FAERS Safety Report 9383646 (Version 1)
Quarter: 2013Q3

REPORT INFORMATION
  Report Type: Spontaneous
  Country: US (occurrence: US)
  Receive Date: 20130704
  Receipt Date: 20130704
  Transmission Date: 20140515
  Serious: No
  Sender: FDA-Public Use
  Company Number: US-009507513-1306USA011831

PATIENT
  Sex: Female

DRUGS (2)
  1. SAPHRIS [Suspect]
     Indication: BIPOLAR DISORDER
     Dosage: 10 MG, QD
     Route: 060
     Dates: end: 201306
  2. SAPHRIS [Suspect]
     Dosage: 5 MG, QD
     Route: 060
     Dates: start: 201306

REACTIONS (3)
  - Hyperprolactinaemia [Recovering/Resolving]
  - Inappropriate schedule of drug administration [Unknown]
  - Underdose [Unknown]
